FAERS Safety Report 10766822 (Version 2)
Quarter: 2017Q3

REPORT INFORMATION
  Report Type: Spontaneous
  Country: US (occurrence: US)
  Receive Date: 20150205
  Receipt Date: 20170823
  Transmission Date: 20171127
  Serious: Yes (Other)
  Sender: FDA-Public Use
  Company Number: US-PFIZER INC-2015046225

PATIENT
  Age: 47 Year
  Sex: Male
  Weight: 84.81 kg

DRUGS (17)
  1. VITAMIN D3 [Concomitant]
     Active Substance: CHOLECALCIFEROL
     Dosage: 5000 IU, 2X/DAY
  2. TRAMADOL. [Concomitant]
     Active Substance: TRAMADOL
     Indication: PAIN
     Dosage: 100 MG (50 MG TWO TABLETS), 3X/DAY
  3. CALCIUM [Concomitant]
     Active Substance: CALCIUM
     Dosage: 2 DF, 3X/DAY
  4. FISH OIL [Concomitant]
     Active Substance: FISH OIL
     Indication: BLOOD CHOLESTEROL INCREASED
     Dosage: 2400 MG (2 CAPSULES OF 1200 MG EACH), 3X/DAY
  5. LYRICA [Suspect]
     Active Substance: PREGABALIN
     Indication: FIBROMYALGIA
     Dosage: 200 MG, 3X/DAY
     Route: 048
     Dates: start: 2004
  6. CLONAZEPAM. [Concomitant]
     Active Substance: CLONAZEPAM
     Indication: STRESS
     Dosage: 1 MG, 3X/DAY
  7. MELOXICAM. [Concomitant]
     Active Substance: MELOXICAM
     Indication: MALAISE
     Dosage: 15 MG, 1X/DAY (MORNING)
  8. LORATADINE. [Concomitant]
     Active Substance: LORATADINE
     Indication: HYPERSENSITIVITY
     Dosage: 10 MG, 1X/DAY (BED TIME)
  9. TIZANIDINE. [Concomitant]
     Active Substance: TIZANIDINE
     Indication: PAIN IN EXTREMITY
     Dosage: 4 MG, 1X/DAY (BEFORE BED)
  10. NIACIN. [Concomitant]
     Active Substance: NIACIN
     Dosage: 1000 MG, 3X/DAY
  11. IRON [Concomitant]
     Active Substance: IRON
     Dosage: 65 MG, 3X/DAY
  12. MELATONIN [Concomitant]
     Active Substance: MELATONIN
     Indication: SLEEP DISORDER
     Dosage: 10 MG, 1X/DAY (BED TIME)
  13. TAMSULOSIN [Concomitant]
     Active Substance: TAMSULOSIN
     Indication: PROSTATIC DISORDER
     Dosage: 0.8 MG (0.4 MG TWO TABLETS), DAILY
  14. SUPER B COMPLEX WITH VITAMIN C [Concomitant]
     Dosage: UNK, 1X/DAY
  15. ZINC. [Concomitant]
     Active Substance: ZINC
     Dosage: 50 MG, 1X/DAY
  16. NORCO [Concomitant]
     Active Substance: ACETAMINOPHEN\HYDROCODONE BITARTRATE
     Indication: PAIN
     Dosage: 1 DF ([HYDROCODONE BITARTRATE 10MG]/[PARACETAMOL 325MG]), 3X/DAY
  17. ZOLPIDEM TARTRATE. [Concomitant]
     Active Substance: ZOLPIDEM TARTRATE
     Indication: SLEEP DISORDER
     Dosage: 10 MG, 1X/DAY (BED TIME)

REACTIONS (6)
  - Spinal disorder [Unknown]
  - Stress [Unknown]
  - Somnolence [Unknown]
  - Intervertebral disc disorder [Unknown]
  - Carpal tunnel syndrome [Unknown]
  - Sluggishness [Unknown]
